FAERS Safety Report 6043111-X (Version None)
Quarter: 2009Q1

REPORT INFORMATION
  Report Type: 
  Country: None (occurrence: None)
  Receive Date: 20090119
  Receipt Date: 20090108
  Transmission Date: 20090719
  Serious: Yes (Hospitalization, Other)
  Sender: FDA-Public Use
  Company Number: CL-PFIZER INC-2008154808

PATIENT

DRUGS (3)
  1. SUTENT [Suspect]
     Indication: RENAL CANCER METASTATIC
     Dosage: 50 MG, UNK
  2. ANTIDEPRESSANTS [Concomitant]
     Dosage: UNK
  3. ALL OTHER THERAPEUTIC PRODUCTS [Concomitant]

REACTIONS (4)
  - HAEMATOMA [None]
  - HAEMORRHAGE [None]
  - RECTAL ABSCESS [None]
  - RECTAL ULCER [None]
